FAERS Safety Report 9726741 (Version 3)
Quarter: 2014Q2

REPORT INFORMATION
  Report Type: Spontaneous
  Country: SE (occurrence: None)
  Receive Date: 20131129
  Receipt Date: 20140620
  Transmission Date: 20141212
  Serious: Yes (Other)
  Sender: FDA-Public Use
  Company Number: SYM-2013-13372

PATIENT
  Age: 64 Year
  Sex: Female

DRUGS (13)
  1. ZYCLARA [Suspect]
     Indication: ACTINIC KERATOSIS
     Dates: start: 201309, end: 20131109
  2. ZYCLARA [Suspect]
     Indication: BASAL CELL CARCINOMA
     Dates: start: 201309, end: 20131109
  3. ZYCLARA [Suspect]
     Indication: SQUAMOUS CELL CARCINOMA
     Dates: start: 201309, end: 20131109
  4. IMODIUM (LOPERAMIDE HYDROCHLORIDE) (LOPERAMIDE) [Concomitant]
  5. MINIFORM (SIMETICONE) [Concomitant]
  6. QUESTRAN (COLESTYRAMINE) [Concomitant]
  7. INOLAXOL (STERCULIA URENS) [Concomitant]
  8. KALCIUM D (CALCIUM) [Concomitant]
  9. BEHEPAN (CYANOCOBALAMIN) [Concomitant]
  10. FOLSYRA (FOLIC ACID) [Concomitant]
  11. OMEGA 3 (FISH OIL) [Concomitant]
  12. INDERAL (PROPRANOLOL HYDROCHLORIDE) [Concomitant]
  13. CANDESARTAN (CANDESARTAN) [Concomitant]

REACTIONS (17)
  - Irritability [None]
  - Depression [None]
  - Depressed mood [None]
  - Suicidal ideation [None]
  - Chills [None]
  - Chills [None]
  - Pyrexia [None]
  - Extrapyramidal disorder [None]
  - Poor quality sleep [None]
  - Fatigue [None]
  - Blood iron decreased [None]
  - Crohn^s disease [None]
  - Nausea [None]
  - Dysgeusia [None]
  - Fear [None]
  - Skin reaction [None]
  - Acne [None]
